FAERS Safety Report 18898473 (Version 1)
Quarter: 2021Q1

REPORT INFORMATION
  Report Type: Spontaneous
  Country: GB (occurrence: GB)
  Receive Date: 20210216
  Receipt Date: 20210216
  Transmission Date: 20210420
  Serious: No
  Sender: FDA-Public Use
  Company Number: GB-ALKEM LABORATORIES LIMITED-GB-ALKEM-2021-00402

PATIENT
  Age: 53 Year
  Sex: Female

DRUGS (3)
  1. COSENTYX [Suspect]
     Active Substance: SECUKINUMAB
     Indication: PSORIASIS
     Dosage: UNK
     Route: 058
     Dates: start: 20190510
  2. PREGABALIN. [Suspect]
     Active Substance: PREGABALIN
     Indication: NECK PAIN
     Dosage: UNK
     Route: 065
  3. COSENTYX [Suspect]
     Active Substance: SECUKINUMAB
     Dosage: 300 MILLIGRAM
     Route: 058
     Dates: start: 20190820, end: 20190830

REACTIONS (7)
  - Nerve compression [Not Recovered/Not Resolved]
  - Insomnia [Recovering/Resolving]
  - Malaise [Recovering/Resolving]
  - Neck pain [Recovered/Resolved with Sequelae]
  - Exostosis [Not Recovered/Not Resolved]
  - Intervertebral disc protrusion [Not Recovered/Not Resolved]
  - Fatigue [Not Recovered/Not Resolved]

NARRATIVE: CASE EVENT DATE: 20190820
